FAERS Safety Report 4524504-6 (Version None)
Quarter: 2005Q1

REPORT INFORMATION
  Report Type: 
  Country: None (occurrence: None)
  Receive Date: 20041117
  Receipt Date: 20031113
  Transmission Date: 20050727
  Serious: Yes (Other)
  Sender: FDA-Public Use
  Company Number: US-JNJFOC-20031103393

PATIENT
  Sex: Male

DRUGS (3)
  1. LEVAQUIN [Suspect]
  2. KEFLEX [Concomitant]
  3. CEFZIL [Concomitant]

REACTIONS (1)
  - TENDON RUPTURE [None]
